FAERS Safety Report 15334020 (Version 3)
Quarter: 2020Q1

REPORT INFORMATION
  Report Type: Report from Study
  Country: None (occurrence: US)
  Receive Date: 20180830
  Receipt Date: 20200105
  Transmission Date: 20200409
  Serious: Yes (Other)
  Sender: FDA-Public Use
  Company Number: US-ABBVIE-18K-163-2271308-00

PATIENT
  Sex: Female
  Weight: 99.88 kg

DRUGS (5)
  1. VITAMIN D [Concomitant]
     Active Substance: VITAMIN D NOS
     Indication: VITAMIN D DEFICIENCY
  2. HUMIRA [Suspect]
     Active Substance: ADALIMUMAB
     Indication: COLITIS ULCERATIVE
  3. VITAMIN B [Concomitant]
     Active Substance: VITAMIN B
     Indication: VITAMIN SUPPLEMENTATION
  4. HUMIRA [Suspect]
     Active Substance: ADALIMUMAB
     Indication: PSORIASIS
     Route: 058
     Dates: start: 2013
  5. VITAMINS C [Concomitant]
     Indication: PROPHYLAXIS URINARY TRACT INFECTION

REACTIONS (19)
  - Pharyngeal mass [Unknown]
  - Insomnia [Unknown]
  - Sleep apnoea syndrome [Recovering/Resolving]
  - Snoring [Unknown]
  - Oxygen saturation decreased [Unknown]
  - Gastrooesophageal reflux disease [Unknown]
  - Blood pressure measurement [Unknown]
  - Oropharyngeal pain [Unknown]
  - Eye haemorrhage [Unknown]
  - Respiratory muscle weakness [Unknown]
  - Psoriasis [Recovered/Resolved]
  - Procedural complication [Recovered/Resolved]
  - Colitis ulcerative [Unknown]
  - Oesophageal mass [Recovered/Resolved]
  - Crohn^s disease [Unknown]
  - Post procedural complication [Unknown]
  - Hypersensitivity [Unknown]
  - Adverse drug reaction [Unknown]
  - Fatigue [Unknown]

NARRATIVE: CASE EVENT DATE: 2018
